FAERS Safety Report 4989818-4 (Version None)
Quarter: 2006Q2

REPORT INFORMATION
  Report Type: 
  Country: None (occurrence: None)
  Receive Date: 20060501
  Receipt Date: 20060419
  Transmission Date: 20061013
  Serious: Yes (Hospitalization, Other)
  Sender: FDA-Public Use
  Company Number: 2006AD000027

PATIENT
  Age: 70 Year
  Sex: Female

DRUGS (8)
  1. CEPHALEXIN                                            (CEPHALEXIN CAPS [Suspect]
     Indication: URINARY TRACT INFECTION
     Dosage: PO
     Route: 048
  2. ACETYLSALICYLIC ACID SRT [Concomitant]
  3. AMITRIPTYLINE HCL [Concomitant]
  4. COMBIVENT [Concomitant]
  5. SALBUTAMOL [Concomitant]
  6. SERETIDE [Concomitant]
  7. TIOTROPIUM BROMIDE [Concomitant]
  8. VITAMIN B-12 [Concomitant]

REACTIONS (2)
  - HEPATITIS ACUTE [None]
  - HEPATOCELLULAR DAMAGE [None]
